FAERS Safety Report 4951945-5 (Version None)
Quarter: 2006Q1

REPORT INFORMATION
  Report Type: 
  Country: None (occurrence: None)
  Receive Date: 20060323
  Receipt Date: 20060308
  Transmission Date: 20060701
  Serious: Yes (Hospitalization, Disabling)
  Sender: FDA-Public Use
  Company Number: IT-MERCK-0603ITA00015

PATIENT
  Age: 76 Year
  Sex: Female

DRUGS (11)
  1. ZOCOR [Suspect]
     Indication: HYPERCHOLESTEROLAEMIA
     Route: 048
     Dates: start: 19930101, end: 20050101
  2. ZOCOR [Suspect]
     Route: 048
     Dates: start: 20051215, end: 20060219
  3. NADROPARIN CALCIUM [Concomitant]
     Route: 058
  4. FUROSEMIDE SODIUM [Concomitant]
     Route: 048
  5. ISOSORBIDE MONONITRATE [Concomitant]
     Route: 048
  6. ENALAPRIL MALEATE [Concomitant]
     Route: 048
  7. NITROGLYCERIN [Concomitant]
     Route: 065
  8. FOSAMAX [Concomitant]
     Route: 065
  9. ISOSORBIDE DINITRATE [Concomitant]
     Route: 048
  10. CALCIUM (UNSPECIFIED) [Concomitant]
     Route: 065
  11. CHOLECALCIFEROL [Concomitant]
     Route: 065

REACTIONS (5)
  - ANURIA [None]
  - ASTHENIA [None]
  - DEEP VEIN THROMBOSIS [None]
  - MYALGIA [None]
  - RHABDOMYOLYSIS [None]
